FAERS Safety Report 20962531 (Version 5)
Quarter: 2023Q2

REPORT INFORMATION
  Report Type: Report from Study
  Country: ES (occurrence: ES)
  Receive Date: 20220615
  Receipt Date: 20230526
  Transmission Date: 20230722
  Serious: Yes (Death, Life-Threatening, Hospitalization)
  Sender: FDA-Public Use
  Company Number: ES-AstraZeneca-2022-45435

PATIENT
  Age: 77 Year
  Sex: Male

DRUGS (19)
  1. FAM-TRASTUZUMAB DERUXTECAN-NXKI [Suspect]
     Active Substance: FAM-TRASTUZUMAB DERUXTECAN-NXKI
     Indication: HER2 positive gastric cancer
     Dosage: 6.4 MG/KG, ONCE EVERY 3 WK
     Route: 042
     Dates: start: 20220525, end: 20220525
  2. CAPECITABINE [Suspect]
     Active Substance: CAPECITABINE
     Indication: HER2 positive gastric cancer
     Dosage: 750 MG/M2, ONCE EVERY 3 WK
     Route: 048
     Dates: start: 20220525
  3. OXALIPLATIN [Suspect]
     Active Substance: OXALIPLATIN
     Indication: HER2 positive gastric cancer
     Dosage: 100 MG/M2, ONCE EVERY 3 WK
     Route: 042
     Dates: start: 20220525, end: 20220525
  4. TRAMADOL [Concomitant]
     Active Substance: TRAMADOL
     Indication: Back pain
     Dosage: 38 MG, TID
     Route: 048
     Dates: start: 20220503
  5. ACETAMINOPHEN [Concomitant]
     Active Substance: ACETAMINOPHEN
     Indication: Back pain
     Dosage: 325 MG, TID
     Route: 048
     Dates: start: 20220503
  6. SPIRONOLACTONE [Concomitant]
     Active Substance: SPIRONOLACTONE
     Indication: Oedema
     Dosage: 100 MG, QD
     Route: 048
     Dates: start: 20220503
  7. MIRABEGRON [Concomitant]
     Active Substance: MIRABEGRON
     Indication: Urinary incontinence
     Dosage: 25 MG, QD
     Route: 048
     Dates: start: 20220503
  8. LORMETAZEPAM [Concomitant]
     Active Substance: LORMETAZEPAM
     Indication: Loop electrosurgical excision procedure
     Dosage: 2 MG, QD
     Route: 048
     Dates: start: 20220503
  9. OMEPRAZOLE [Concomitant]
     Active Substance: OMEPRAZOLE
     Indication: Prophylaxis
     Dosage: 40 MG, QD
     Route: 048
     Dates: start: 20220503
  10. FUROSEMIDE [Concomitant]
     Active Substance: FUROSEMIDE
     Indication: Oedema
     Dosage: 40 MG, QD
     Route: 048
     Dates: start: 20220503
  11. TINZAPARIN SODIUM [Concomitant]
     Active Substance: TINZAPARIN SODIUM
     Indication: Thrombosis prophylaxis
     Dosage: UNK UNK, QD
     Route: 058
     Dates: start: 20220503, end: 20220607
  12. VITAMIN K [Concomitant]
     Active Substance: PHYTONADIONE
     Indication: Diarrhoea
     Dosage: 10 MG/ML, QD
     Route: 042
     Dates: start: 20220607, end: 20220613
  13. FILGRASTIM [Concomitant]
     Active Substance: FILGRASTIM
     Indication: Neutropenia
     Dosage: 0.5 MU/KG/DAY QD
     Route: 042
     Dates: start: 20220607, end: 20220613
  14. PIPERACILLIN [Concomitant]
     Active Substance: PIPERACILLIN
     Indication: Diarrhoea
     Dosage: 4 G, QD
     Route: 042
     Dates: start: 20220607
  15. TAZOBACTAM [Concomitant]
     Active Substance: TAZOBACTAM
     Indication: Diarrhoea
     Dosage: 1 G, QD
     Route: 042
     Dates: start: 20220607
  16. NOVORAPID [Concomitant]
     Active Substance: INSULIN ASPART
     Indication: Hyperglycaemia
     Dosage: UNK UNK, QD
     Route: 058
     Dates: start: 20220610, end: 20220610
  17. NOVORAPID [Concomitant]
     Active Substance: INSULIN ASPART
     Dosage: UNK
     Route: 058
     Dates: start: 20220611
  18. SODIUM CHLORIDE [Concomitant]
     Active Substance: SODIUM CHLORIDE
     Indication: Vomiting
     Dosage: AS REQUIRED
     Route: 042
     Dates: start: 20220606, end: 20220613
  19. PARENTRAL NUTRITION [Concomitant]
     Indication: Diarrhoea
     Dosage: UNK UNK, QD
     Route: 042
     Dates: start: 20220607, end: 20220613

REACTIONS (3)
  - General physical health deterioration [Fatal]
  - Vomiting [Recovered/Resolved with Sequelae]
  - Diarrhoea haemorrhagic [Recovered/Resolved with Sequelae]

NARRATIVE: CASE EVENT DATE: 20220606
